FAERS Safety Report 7854949-8 (Version None)
Quarter: 2011Q4

REPORT INFORMATION
  Report Type: 
  Country: None (occurrence: None)
  Receive Date: 20111026
  Receipt Date: 20111021
  Transmission Date: 20120403
  Serious: Yes (Other)
  Sender: FDA-Public Use
  Company Number: US-BAYER-2011-103457

PATIENT
  Sex: Female

DRUGS (2)
  1. BETAPACE AF [Suspect]
     Dosage: UNK
     Dates: end: 20110701
  2. BETAPACE [Suspect]
     Dosage: UNK
     Dates: start: 20110601

REACTIONS (2)
  - ATRIAL FIBRILLATION [None]
  - CARDIAC PACEMAKER REPLACEMENT [None]
